FAERS Safety Report 9275961 (Version 8)
Quarter: 2013Q4

REPORT INFORMATION
  Report Type: Spontaneous
  Country: US (occurrence: US)
  Receive Date: 20130507
  Receipt Date: 20131216
  Transmission Date: 20140711
  Serious: Yes (Other)
  Sender: FDA-Public Use
  Company Number: US-JNJFOC-20130502332

PATIENT
  Sex: Female

DRUGS (7)
  1. TOPAMAX [Suspect]
     Indication: BIPOLAR DISORDER
     Route: 048
     Dates: start: 200511, end: 200601
  2. WELLBUTRIN [Suspect]
     Indication: PRODUCT USED FOR UNKNOWN INDICATION
     Route: 065
  3. ESTROGEN [Suspect]
     Indication: VAGINAL HAEMORRHAGE
     Route: 065
  4. ZOLOFT [Suspect]
     Indication: BIPOLAR DISORDER
     Route: 065
  5. PROMETRIUM [Suspect]
     Indication: HORMONE REPLACEMENT THERAPY
     Route: 065
  6. IBUPROFEN [Suspect]
     Indication: DYSMENORRHOEA
     Route: 065
  7. MULTIVITAMINS W/MINERALS [Concomitant]
     Route: 048

REACTIONS (4)
  - Premature delivery [Not Recovered/Not Resolved]
  - Exposure during pregnancy [Recovered/Resolved]
  - Caesarean section [Recovered/Resolved]
  - Emotional disorder [Unknown]
